FAERS Safety Report 15844932 (Version 3)
Quarter: 2020Q3

REPORT INFORMATION
  Report Type: Report from Study
  Country: US (occurrence: US)
  Receive Date: 20190119
  Receipt Date: 20200817
  Transmission Date: 20201102
  Serious: Yes (Hospitalization)
  Sender: FDA-Public Use
  Company Number: US-ACTELION-A-NJ2018-172362

PATIENT
  Sex: Female
  Weight: 82.99 kg

DRUGS (3)
  1. VELETRI [Suspect]
     Active Substance: EPOPROSTENOL
     Indication: PULMONARY HYPERTENSION
     Dosage: 33 NG/KG, PER MIN
     Route: 042
  2. VELETRI [Suspect]
     Active Substance: EPOPROSTENOL
     Dosage: 32 NG/KG, PER MIN
     Route: 042
  3. VELETRI [Suspect]
     Active Substance: EPOPROSTENOL
     Dosage: 30 NG/KG, PER MIN
     Route: 042

REACTIONS (10)
  - Dyspnoea [Not Recovered/Not Resolved]
  - Pneumonia [Unknown]
  - Pain in jaw [Unknown]
  - Chest pain [Not Recovered/Not Resolved]
  - Rash macular [Unknown]
  - Myalgia [Recovering/Resolving]
  - Palpitations [Not Recovered/Not Resolved]
  - Tooth extraction [Unknown]
  - Illness [Unknown]
  - Viral infection [Unknown]
